FAERS Safety Report 17759900 (Version 2)
Quarter: 2020Q2

REPORT INFORMATION
  Report Type: Spontaneous
  Country: US (occurrence: US)
  Receive Date: 20200508
  Receipt Date: 20200608
  Transmission Date: 20200714
  Serious: No
  Sender: FDA-Public Use
  Company Number: US-IPSEN BIOPHARMACEUTICALS, INC.-2020-08174

PATIENT
  Sex: Male
  Weight: 79.37 kg

DRUGS (12)
  1. AFINITOR [Concomitant]
     Active Substance: EVEROLIMUS
  2. CARVEDILOL. [Concomitant]
     Active Substance: CARVEDILOL
  3. SOMATULINE DEPOT [Suspect]
     Active Substance: LANREOTIDE ACETATE
     Indication: MALIGNANT NEOPLASM OF RENAL PELVIS
     Dosage: 120 MG IN 0.5 ML
     Route: 065
     Dates: start: 2020
  4. VITAMIN B2 [Concomitant]
     Active Substance: RIBOFLAVIN
  5. UPTRAVI [Concomitant]
     Active Substance: SELEXIPAG
  6. MINOXIDIL. [Concomitant]
     Active Substance: MINOXIDIL
  7. TUMS [Concomitant]
     Active Substance: CALCIUM CARBONATE
  8. POTASSIUM CHLORIDE. [Concomitant]
     Active Substance: POTASSIUM CHLORIDE
  9. SOMATULINE DEPOT [Suspect]
     Active Substance: LANREOTIDE ACETATE
     Indication: OFF LABEL USE
  10. PROAIR HFA [Concomitant]
     Active Substance: ALBUTEROL SULFATE
  11. MYRBETRIQ [Concomitant]
     Active Substance: MIRABEGRON
  12. VITAMIN B12 [Concomitant]
     Active Substance: CYANOCOBALAMIN

REACTIONS (4)
  - Fatigue [Unknown]
  - Off label use [Unknown]
  - Agitation [Unknown]
  - Unevaluable event [Unknown]
